FAERS Safety Report 4663730-2 (Version None)
Quarter: 2005Q2

REPORT INFORMATION
  Report Type: 
  Country: None (occurrence: None)
  Receive Date: 20050516
  Receipt Date: 20050510
  Transmission Date: 20051028
  Serious: Yes (Hospitalization)
  Sender: FDA-Public Use
  Company Number: USA-2005-0020215

PATIENT
  Sex: Female

DRUGS (2)
  1. OXYCONTIN [Suspect]
     Indication: PAIN
  2. VICODIN [Concomitant]

REACTIONS (3)
  - APNOEA [None]
  - INCORRECT DOSE ADMINISTERED [None]
  - SEDATION [None]
